FAERS Safety Report 5997026-3 (Version None)
Quarter: 2008Q4

REPORT INFORMATION
  Report Type: 
  Country: None (occurrence: None)
  Receive Date: 20081212
  Receipt Date: 20081103
  Transmission Date: 20090506
  Serious: No
  Sender: FDA-Public Use
  Company Number: US-ABBOTT-08P-163-0485155-00

PATIENT
  Sex: Male
  Weight: 120.31 kg

DRUGS (2)
  1. HUMIRA [Suspect]
     Indication: PSORIASIS
     Route: 058
     Dates: start: 20080401, end: 20080901
  2. MUSCLE RELAXANTS [Concomitant]
     Indication: BACK PAIN
     Route: 048

REACTIONS (2)
  - DRY SKIN [None]
  - PSORIASIS [None]
